FAERS Safety Report 22335726 (Version 1)
Quarter: 2023Q2

REPORT INFORMATION
  Report Type: Spontaneous
  Country: IT (occurrence: IT)
  Receive Date: 20230518
  Receipt Date: 20230518
  Transmission Date: 20230722
  Serious: Yes (Other)
  Sender: FDA-Public Use
  Company Number: IT-NOVITIUMPHARMA-2023ITNVP00734

PATIENT
  Sex: Male

DRUGS (6)
  1. PREDNISONE [Suspect]
     Active Substance: PREDNISONE
     Indication: Autoinflammatory disease
     Dosage: 25-50 MG
     Route: 048
     Dates: start: 2011
  2. PREDNISONE [Suspect]
     Active Substance: PREDNISONE
  3. AZATHIOPRINE [Concomitant]
     Active Substance: AZATHIOPRINE
     Indication: Autoinflammatory disease
  4. MYCOPHENOLATE MOFETIL [Concomitant]
     Active Substance: MYCOPHENOLATE MOFETIL
     Indication: Autoinflammatory disease
  5. METHOTREXATE [Concomitant]
     Active Substance: METHOTREXATE
     Indication: Autoinflammatory disease
  6. HYDROXYCHLOROQUINE [Concomitant]
     Active Substance: HYDROXYCHLOROQUINE
     Indication: Autoinflammatory disease

REACTIONS (5)
  - Acute myocardial infarction [Unknown]
  - Spinal fracture [Unknown]
  - Steroid withdrawal syndrome [Unknown]
  - Metabolic syndrome [Unknown]
  - Osteoporosis [Unknown]
